FAERS Safety Report 9496211 (Version 3)
Quarter: 2013Q4

REPORT INFORMATION
  Report Type: Spontaneous
  Country: US (occurrence: US)
  Receive Date: 20130904
  Receipt Date: 20131129
  Transmission Date: 20140711
  Serious: Yes (Death, Hospitalization)
  Sender: FDA-Public Use
  Company Number: US-JNJFOC-20130813187

PATIENT
  Age: 95 Year
  Sex: Male
  Weight: 72.58 kg

DRUGS (2)
  1. LUBRIDERM DAILY MOISTURE WITH SPF 15 [Suspect]
     Indication: DRY SKIN
     Route: 061
  2. LUBRIDERM DAILY MOISTURE FRAGRANCE FREE [Suspect]
     Indication: DRY SKIN
     Route: 061

REACTIONS (2)
  - Investigation [Recovered/Resolved]
  - Product quality issue [Unknown]
